FAERS Safety Report 14029606 (Version 6)
Quarter: 2017Q4

REPORT INFORMATION
  Report Type: Spontaneous
  Country: US (occurrence: US)
  Receive Date: 20171002
  Receipt Date: 20171220
  Transmission Date: 20180321
  Serious: No
  Sender: FDA-Public Use
  Company Number: US-JAZZ-2017-US-011197

PATIENT
  Sex: Female

DRUGS (10)
  1. XYREM [Suspect]
     Active Substance: SODIUM OXYBATE
     Indication: SOMNOLENCE
     Dosage: 4.5 G, BID
     Route: 048
     Dates: start: 20170829
  2. VITAMIN D                          /00107901/ [Concomitant]
     Active Substance: ERGOCALCIFEROL
  3. XYREM [Suspect]
     Active Substance: SODIUM OXYBATE
     Indication: NARCOLEPSY
     Dosage: DOSE ADJUSTMENT
     Route: 048
     Dates: start: 201708, end: 201708
  4. XYREM [Suspect]
     Active Substance: SODIUM OXYBATE
     Indication: HYPERSOMNIA
     Dosage: 2.25G, BID
     Route: 048
     Dates: start: 20170807, end: 201708
  5. ZINC. [Concomitant]
     Active Substance: ZINC
  6. MIRALAX [Suspect]
     Active Substance: POLYETHYLENE GLYCOL 3350
     Indication: PRODUCT USED FOR UNKNOWN INDICATION
  7. KETOCONAZOLE. [Concomitant]
     Active Substance: KETOCONAZOLE
     Indication: FOLLICULITIS
  8. MVI                                /01825701/ [Concomitant]
     Active Substance: VITAMINS
  9. EFFEXOR [Suspect]
     Active Substance: VENLAFAXINE HYDROCHLORIDE
     Indication: PRODUCT USED FOR UNKNOWN INDICATION
  10. CALCIUM [Concomitant]
     Active Substance: CALCIUM

REACTIONS (31)
  - Anger [Unknown]
  - Dehydroepiandrosterone increased [Unknown]
  - Aggression [Unknown]
  - Memory impairment [Not Recovered/Not Resolved]
  - Hypertension [Recovered/Resolved]
  - Headache [Not Recovered/Not Resolved]
  - Alopecia [Not Recovered/Not Resolved]
  - Seborrhoea [Not Recovered/Not Resolved]
  - Anxiety [Not Recovered/Not Resolved]
  - Intrusive thoughts [Not Recovered/Not Resolved]
  - Irritable bowel syndrome [Not Recovered/Not Resolved]
  - Hypopnoea [Recovered/Resolved]
  - Mania [Unknown]
  - Vaginal discharge [Not Recovered/Not Resolved]
  - Fatigue [Unknown]
  - Migraine [Unknown]
  - Thinking abnormal [Unknown]
  - Goitre [Not Recovered/Not Resolved]
  - Agitation [Unknown]
  - Dizziness [Unknown]
  - Irritability [Not Recovered/Not Resolved]
  - Middle insomnia [Not Recovered/Not Resolved]
  - Constipation [Not Recovered/Not Resolved]
  - Stress [Unknown]
  - Drug ineffective [Unknown]
  - Distractibility [Unknown]
  - Therapeutic response decreased [Not Recovered/Not Resolved]
  - Palpitations [Unknown]
  - Weight increased [Unknown]
  - Depression [Not Recovered/Not Resolved]
  - Tremor [Recovering/Resolving]

NARRATIVE: CASE EVENT DATE: 2017
